FAERS Safety Report 7312664-3 (Version None)
Quarter: 2011Q1

REPORT INFORMATION
  Report Type: 
  Country: None (occurrence: None)
  Receive Date: 20110224
  Receipt Date: 20110103
  Transmission Date: 20110831
  Serious: No
  Sender: FDA-Public Use
  Company Number: US-ASTRAZENECA-2011SE00168

PATIENT
  Age: 22073 Day
  Sex: Female
  Weight: 81.6 kg

DRUGS (3)
  1. CHOLESTEROL MED [Concomitant]
  2. BP MEDICATION [Concomitant]
  3. VIMOVO [Suspect]
     Dosage: 500/20 MG BID
     Route: 048

REACTIONS (3)
  - ABDOMINAL PAIN UPPER [None]
  - DIARRHOEA [None]
  - DRUG DOSE OMISSION [None]
